FAERS Safety Report 15839532 (Version 1)
Quarter: 2019Q1

REPORT INFORMATION
  Report Type: Spontaneous
  Country: US (occurrence: US)
  Receive Date: 20190117
  Receipt Date: 20190117
  Transmission Date: 20190417
  Serious: No
  Sender: FDA-Public Use
  Company Number: US-SIGMAPHARM LABORATORIES, LLC-2018SIG00019

PATIENT
  Sex: Female
  Weight: 54.88 kg

DRUGS (7)
  1. SELENIUM [Concomitant]
     Active Substance: SELENIUM
     Dosage: 400 ?G, 1X/DAY
  2. LIOTHYRONINE SODIUM. [Suspect]
     Active Substance: LIOTHYRONINE SODIUM
     Indication: AUTOIMMUNE THYROIDITIS
     Dosage: 7.5 ?G, (5 ?G IN MORNING AND 2.5 ?G IN AFTERNOON)
     Dates: start: 201803
  3. BLACK SEED OIL [Concomitant]
     Dosage: 2 TABLETS, 1X/DAY
  4. ZINC. [Concomitant]
     Active Substance: ZINC
     Dosage: 1 TABLETS, 1X/DAY
  5. NATURAL E COMPLEX WITH TOCOPHEROLS [Concomitant]
     Dosage: 400 IU, 1X/DAY
  6. BENTONITE CLAY [Concomitant]
     Dosage: ^A LITTLE BIT MIXED IN WATER^, 1X/DAY IN THE EVENING
     Route: 048
  7. LIOTHYRONINE SODIUM. [Suspect]
     Active Substance: LIOTHYRONINE SODIUM
     Dosage: 5 ?G, 2X/DAY
     Route: 048
     Dates: end: 20180501

REACTIONS (6)
  - Malaise [Not Recovered/Not Resolved]
  - Product substitution issue [Recovered/Resolved]
  - Tri-iodothyronine decreased [Recovered/Resolved]
  - Blood thyroid stimulating hormone increased [Unknown]
  - Fatigue [Not Recovered/Not Resolved]
  - Headache [Not Recovered/Not Resolved]
